FAERS Safety Report 20829996 (Version 3)
Quarter: 2022Q2

REPORT INFORMATION
  Report Type: Spontaneous
  Country: US (occurrence: US)
  Receive Date: 20220514
  Receipt Date: 20220623
  Transmission Date: 20220720
  Serious: Yes (Hospitalization)
  Sender: FDA-Public Use
  Company Number: US-UNITED THERAPEUTICS-UNT-2022-010265

PATIENT
  Age: 78 Year
  Sex: Female

DRUGS (3)
  1. TYVASO [Suspect]
     Active Substance: TREPROSTINIL
     Indication: Pulmonary arterial hypertension
     Dosage: UNK
     Dates: start: 202107
  2. TYVASO [Suspect]
     Active Substance: TREPROSTINIL
     Dosage: 72 ?G, QID
  3. LETAIRIS [Concomitant]
     Active Substance: AMBRISENTAN
     Indication: Pulmonary hypertension
     Dosage: 10 MG, QD
     Route: 065
     Dates: start: 202104, end: 2022

REACTIONS (2)
  - Anaemia [Not Recovered/Not Resolved]
  - Intentional product use issue [Unknown]

NARRATIVE: CASE EVENT DATE: 20220615
